FAERS Safety Report 11826440 (Version 1)
Quarter: 2015Q4

REPORT INFORMATION
  Report Type: Spontaneous
  Country: US (occurrence: US)
  Receive Date: 20151211
  Receipt Date: 20151211
  Transmission Date: 20160305
  Serious: No
  Sender: FDA-Public Use
  Company Number: US-MYLANLABS-2015M1021959

PATIENT
  Age: 55 Year
  Sex: Male
  Weight: 79.37 kg

DRUGS (1)
  1. DOXYCYCLINE TABLETS, USP [Suspect]
     Active Substance: DOXYCYCLINE
     Dosage: 50 MG, BID
     Route: 048
     Dates: start: 20150609, end: 20150618

REACTIONS (1)
  - Yellow skin [Not Recovered/Not Resolved]

NARRATIVE: CASE EVENT DATE: 20150618
